FAERS Safety Report 14221485 (Version 3)
Quarter: 2018Q1

REPORT INFORMATION
  Report Type: Spontaneous
  Country: JP (occurrence: JP)
  Receive Date: 20171124
  Receipt Date: 20180326
  Transmission Date: 20180508
  Serious: Yes (Hospitalization)
  Sender: FDA-Public Use
  Company Number: JP-JNJFOC-20171121266

PATIENT
  Age: 20 Year
  Sex: Male
  Weight: 62 kg

DRUGS (48)
  1. PREDONINE [Concomitant]
     Active Substance: PREDNISOLONE
     Route: 041
     Dates: start: 20170429, end: 20170429
  2. NORMAL SALINE [Concomitant]
     Active Substance: SODIUM CHLORIDE
     Route: 041
     Dates: start: 20160618, end: 20160618
  3. NORMAL SALINE [Concomitant]
     Active Substance: SODIUM CHLORIDE
     Route: 041
     Dates: start: 20161117, end: 20161117
  4. SOLITA-T3 [Concomitant]
     Active Substance: POTASSIUM CHLORIDE\SODIUM CHLORIDE\SODIUM LACTATE
     Route: 041
     Dates: start: 20160109, end: 20160109
  5. REMICADE [Suspect]
     Active Substance: INFLIXIMAB
     Indication: CROHN^S DISEASE
     Route: 042
     Dates: start: 20080415
  6. REMICADE [Suspect]
     Active Substance: INFLIXIMAB
     Indication: CROHN^S DISEASE
     Route: 042
     Dates: start: 20160423
  7. REMICADE [Suspect]
     Active Substance: INFLIXIMAB
     Indication: CROHN^S DISEASE
     Route: 042
     Dates: start: 20160618
  8. REMICADE [Suspect]
     Active Substance: INFLIXIMAB
     Indication: CROHN^S DISEASE
     Route: 042
     Dates: start: 20170114
  9. PENTASA [Suspect]
     Active Substance: MESALAMINE
     Indication: CROHN^S DISEASE
     Route: 048
     Dates: end: 20170624
  10. PREDONINE [Concomitant]
     Active Substance: PREDNISOLONE
     Route: 041
     Dates: start: 20160618, end: 20160618
  11. PREDONINE [Concomitant]
     Active Substance: PREDNISOLONE
     Route: 041
     Dates: start: 20160806, end: 20160806
  12. PREDONINE [Concomitant]
     Active Substance: PREDNISOLONE
     Route: 041
     Dates: start: 20170114, end: 20170114
  13. NORMAL SALINE [Concomitant]
     Active Substance: SODIUM CHLORIDE
     Route: 041
     Dates: start: 20150725, end: 20150725
  14. MIYA-BM [Concomitant]
     Active Substance: CLOSTRIDIUM BUTYRICUM SPORES STRAIN M-55
     Indication: CROHN^S DISEASE
     Route: 048
     Dates: end: 20170624
  15. REMICADE [Suspect]
     Active Substance: INFLIXIMAB
     Indication: CROHN^S DISEASE
     Route: 042
     Dates: start: 20161117
  16. REMICADE [Suspect]
     Active Substance: INFLIXIMAB
     Indication: CROHN^S DISEASE
     Route: 042
     Dates: start: 20170429
  17. NORMAL SALINE [Concomitant]
     Active Substance: SODIUM CHLORIDE
     Route: 041
     Dates: start: 20160109, end: 20160109
  18. PREDONINE [Concomitant]
     Active Substance: PREDNISOLONE
     Route: 041
     Dates: start: 20160227, end: 20160227
  19. PREDONINE [Concomitant]
     Active Substance: PREDNISOLONE
     Route: 041
     Dates: start: 20160924, end: 20160924
  20. NORMAL SALINE [Concomitant]
     Active Substance: SODIUM CHLORIDE
     Route: 041
     Dates: start: 20151110, end: 20151110
  21. NORMAL SALINE [Concomitant]
     Active Substance: SODIUM CHLORIDE
     Route: 041
     Dates: start: 20160227, end: 20160227
  22. NORMAL SALINE [Concomitant]
     Active Substance: SODIUM CHLORIDE
     Route: 041
     Dates: start: 20160924, end: 20160924
  23. NORMAL SALINE [Concomitant]
     Active Substance: SODIUM CHLORIDE
     Route: 041
     Dates: start: 20170311, end: 20170311
  24. REMICADE [Suspect]
     Active Substance: INFLIXIMAB
     Indication: CROHN^S DISEASE
     Route: 042
     Dates: start: 20150912
  25. ALCOHOL. [Suspect]
     Active Substance: ALCOHOL
     Indication: PRODUCT USED FOR UNKNOWN INDICATION
     Route: 065
  26. PREDONINE [Concomitant]
     Active Substance: PREDNISOLONE
     Route: 041
  27. PREDONINE [Concomitant]
     Active Substance: PREDNISOLONE
     Route: 041
     Dates: start: 20170311, end: 20170311
  28. PREDONINE [Concomitant]
     Active Substance: PREDNISOLONE
     Route: 041
     Dates: start: 20170624, end: 20170624
  29. NORMAL SALINE [Concomitant]
     Active Substance: SODIUM CHLORIDE
     Route: 041
     Dates: start: 20150912, end: 20150912
  30. NORMAL SALINE [Concomitant]
     Active Substance: SODIUM CHLORIDE
     Route: 041
     Dates: start: 20170624, end: 20170624
  31. NORMAL SALINE [Concomitant]
     Active Substance: SODIUM CHLORIDE
     Route: 041
     Dates: start: 20160423, end: 20160423
  32. NORMAL SALINE [Concomitant]
     Active Substance: SODIUM CHLORIDE
     Route: 041
     Dates: start: 20170114, end: 20170114
  33. NORMAL SALINE [Concomitant]
     Active Substance: SODIUM CHLORIDE
     Route: 041
     Dates: start: 20170429, end: 20170429
  34. NIZATIDINE. [Concomitant]
     Active Substance: NIZATIDINE
     Indication: CROHN^S DISEASE
     Route: 048
     Dates: end: 20170624
  35. REMICADE [Suspect]
     Active Substance: INFLIXIMAB
     Indication: CROHN^S DISEASE
     Route: 042
     Dates: start: 20160227
  36. REMICADE [Suspect]
     Active Substance: INFLIXIMAB
     Indication: CROHN^S DISEASE
     Route: 042
     Dates: start: 20160924
  37. REMICADE [Suspect]
     Active Substance: INFLIXIMAB
     Indication: CROHN^S DISEASE
     Route: 042
     Dates: start: 20170311
  38. REMICADE [Suspect]
     Active Substance: INFLIXIMAB
     Indication: CROHN^S DISEASE
     Route: 042
     Dates: start: 20170624
  39. PREDONINE [Concomitant]
     Active Substance: PREDNISOLONE
     Route: 041
     Dates: start: 20160109, end: 20160109
  40. PREDONINE [Concomitant]
     Active Substance: PREDNISOLONE
     Route: 041
     Dates: start: 20161117, end: 20161117
  41. NORMAL SALINE [Concomitant]
     Active Substance: SODIUM CHLORIDE
     Route: 041
     Dates: start: 20160806, end: 20160806
  42. REMICADE [Suspect]
     Active Substance: INFLIXIMAB
     Indication: CROHN^S DISEASE
     Route: 042
     Dates: start: 20150725
  43. REMICADE [Suspect]
     Active Substance: INFLIXIMAB
     Indication: CROHN^S DISEASE
     Route: 042
     Dates: start: 20151110
  44. REMICADE [Suspect]
     Active Substance: INFLIXIMAB
     Indication: CROHN^S DISEASE
     Route: 042
     Dates: start: 20160109
  45. REMICADE [Suspect]
     Active Substance: INFLIXIMAB
     Indication: CROHN^S DISEASE
     Route: 042
     Dates: start: 20160806
  46. PREDONINE [Concomitant]
     Active Substance: PREDNISOLONE
     Route: 041
  47. PREDONINE [Concomitant]
     Active Substance: PREDNISOLONE
     Route: 041
     Dates: start: 20151110, end: 20151110
  48. PREDONINE [Concomitant]
     Active Substance: PREDNISOLONE
     Route: 041
     Dates: start: 20160423, end: 20160423

REACTIONS (7)
  - Treatment noncompliance [Unknown]
  - IgA nephropathy [Recovered/Resolved]
  - Melaena [Recovered/Resolved]
  - Infusion related reaction [Recovered/Resolved]
  - Haemoglobin decreased [Recovered/Resolved]
  - Flushing [Recovered/Resolved]
  - Tonsillectomy [Unknown]

NARRATIVE: CASE EVENT DATE: 200806
